FAERS Safety Report 5885017-2 (Version None)
Quarter: 2008Q3

REPORT INFORMATION
  Report Type: 
  Country: None (occurrence: None)
  Receive Date: 20080915
  Receipt Date: 20080915
  Transmission Date: 20090109
  Serious: Yes (Hospitalization)
  Sender: FDA-Public Use
  Company Number: None

PATIENT
  Age: 40 Year
  Sex: Female
  Weight: 97.2 kg

DRUGS (13)
  1. DASATIIB [Suspect]
     Indication: BREAST CANCER METASTATIC
     Dosage: 50 MG BID PO
     Route: 048
     Dates: start: 20080903, end: 20080905
  2. WELLBUTRIN [Concomitant]
  3. AMBIEN [Concomitant]
  4. MULTI-VITAMIN [Concomitant]
  5. ALEVE (CAPLET) [Concomitant]
  6. OXYCODONE HCL EXTENDED-RELEASE [Concomitant]
  7. OXYCODONE AND ACETAMINOPHEN [Concomitant]
  8. LORAZEPAM [Concomitant]
  9. ZOFRAN [Concomitant]
  10. METOCLOPRAMIDE [Concomitant]
  11. MAGNESIUM CITRATE [Concomitant]
  12. MIRALAX [Concomitant]
  13. SENOKOT [Concomitant]

REACTIONS (2)
  - DEHYDRATION [None]
  - ILEUS PARALYTIC [None]
